FAERS Safety Report 9346694 (Version 1)
Quarter: 2013Q2

REPORT INFORMATION
  Report Type: Spontaneous
  Country: BR (occurrence: BR)
  Receive Date: 20130613
  Receipt Date: 20130613
  Transmission Date: 20140414
  Serious: Yes (Other)
  Sender: FDA-Public Use
  Company Number: BR-BAYER-2013-072803

PATIENT
  Sex: Male

DRUGS (3)
  1. PROMIRA [Suspect]
     Indication: BRONCHITIS
     Dosage: 400 MG, QD
     Route: 048
     Dates: start: 20130604
  2. PROMIRA [Suspect]
     Indication: NASOPHARYNGITIS
  3. RANITIDINE [Concomitant]
     Indication: GASTRITIS

REACTIONS (1)
  - Intestinal haemorrhage [None]
